FAERS Safety Report 8584326-6 (Version None)
Quarter: 2012Q3

REPORT INFORMATION
  Report Type: 
  Country: None (occurrence: None)
  Receive Date: 20120810
  Receipt Date: 20120801
  Transmission Date: 20120928
  Serious: No
  Sender: FDA-Public Use
  Company Number: US-BIOGENIDEC-2012BI028788

PATIENT
  Age: 48 Year
  Sex: Female

DRUGS (3)
  1. BACLOFEN [Concomitant]
     Indication: SENSATION OF HEAVINESS
  2. TYSABRI [Suspect]
     Indication: MULTIPLE SCLEROSIS
     Route: 042
     Dates: start: 20120625
  3. CYMBALTA [Concomitant]
     Indication: DEPRESSION
     Dates: start: 20120401

REACTIONS (3)
  - ARTHRALGIA [None]
  - PAIN IN EXTREMITY [None]
  - ENDODONTIC PROCEDURE [None]
